FAERS Safety Report 18403763 (Version 3)
Quarter: 2020Q4

REPORT INFORMATION
  Report Type: Report from Study
  Country: GB (occurrence: GB)
  Receive Date: 20201020
  Receipt Date: 20201102
  Transmission Date: 20210114
  Serious: Yes (Other)
  Sender: FDA-Public Use
  Company Number: NVSC2020GB278779

PATIENT
  Sex: Female

DRUGS (2)
  1. COSENTYX [Suspect]
     Active Substance: SECUKINUMAB
     Dosage: 150 MG, QMO
     Route: 065
  2. COSENTYX [Suspect]
     Active Substance: SECUKINUMAB
     Indication: PSORIATIC ARTHROPATHY
     Dosage: 150 MG, QW (WEEKS 0, 1, 2, 3, 4: 150MG AND THEN 150MG MONTHLY)
     Route: 058
     Dates: start: 20200928

REACTIONS (8)
  - Feeling hot [Unknown]
  - Arthralgia [Unknown]
  - Localised infection [Recovered/Resolved]
  - Cellulitis [Unknown]
  - Joint swelling [Unknown]
  - Erythema [Unknown]
  - Blood pressure increased [Unknown]
  - Oedema peripheral [Unknown]
